FAERS Safety Report 16930074 (Version 1)
Quarter: 2019Q4

REPORT INFORMATION
  Report Type: Report from Study
  Country: GB (occurrence: GB)
  Receive Date: 20191017
  Receipt Date: 20191017
  Transmission Date: 20200122
  Serious: Yes (Other)
  Sender: FDA-Public Use
  Company Number: GB-MYLANLABS-13X-167-1159954-00

PATIENT
  Age: 28 Year
  Sex: Female

DRUGS (1)
  1. LEVILEX [Suspect]
     Active Substance: LEVETIRACETAM
     Indication: PRODUCT USED FOR UNKNOWN INDICATION
     Dosage: TOTAL DAILY DOSE: 3000 (UNITS UNSPECIFIED

REACTIONS (3)
  - Exposure during pregnancy [Recovered/Resolved]
  - Drug level decreased [Unknown]
  - Seizure [Unknown]
